FAERS Safety Report 5513099-6 (Version None)
Quarter: 2007Q4

REPORT INFORMATION
  Report Type: 
  Country: None (occurrence: None)
  Receive Date: 20071108
  Receipt Date: 20071024
  Transmission Date: 20080405
  Serious: Yes (Hospitalization, Other)
  Sender: FDA-Public Use
  Company Number: STI-2007-01779

PATIENT
  Age: 67 Year
  Sex: Female

DRUGS (3)
  1. CLINDAMYCIN HCL [Suspect]
     Indication: SKIN GRAFT
  2. AMPICILLIN [Suspect]
     Indication: SKIN GRAFT
  3. ERYTHROMYCIN [Suspect]

REACTIONS (1)
  - PSEUDOMEMBRANOUS COLITIS [None]
